FAERS Safety Report 23954994 (Version 1)
Quarter: 2024Q2

REPORT INFORMATION
  Report Type: Spontaneous
  Country: US (occurrence: US)
  Receive Date: 20240610
  Receipt Date: 20240610
  Transmission Date: 20240716
  Serious: No
  Sender: FDA-Public Use
  Company Number: US-APOTEX-2024AP006318

PATIENT
  Age: 4 Year
  Sex: Female

DRUGS (4)
  1. DIPHENHYDRAMINE [Suspect]
     Active Substance: DIPHENHYDRAMINE
     Indication: Diffuse cutaneous mastocytosis
     Dosage: UNK
     Route: 065
  2. TRIAMCINOLONE [Concomitant]
     Active Substance: TRIAMCINOLONE
     Indication: Diffuse cutaneous mastocytosis
     Dosage: UNK
     Route: 061
  3. LEVOCETIRIZINE [Concomitant]
     Active Substance: LEVOCETIRIZINE
     Indication: Diffuse cutaneous mastocytosis
     Dosage: 2.5 MILLIGRAM, QD
     Route: 065
  4. LEVOCETIRIZINE [Concomitant]
     Active Substance: LEVOCETIRIZINE
     Dosage: 2.5 MILLIGRAM, BID
     Route: 065

REACTIONS (1)
  - Paradoxical drug reaction [Unknown]
